FAERS Safety Report 6040626-5 (Version None)
Quarter: 2009Q1

REPORT INFORMATION
  Report Type: 
  Country: None (occurrence: None)
  Receive Date: 20090116
  Receipt Date: 20080422
  Transmission Date: 20090719
  Serious: No
  Sender: FDA-Public Use
  Company Number: US-BRISTOL-MYERS SQUIBB COMPANY-14157226

PATIENT
  Age: 36 Year
  Sex: Male
  Weight: 76 kg

DRUGS (2)
  1. ABILIFY [Suspect]
     Dates: start: 20080325, end: 20080414
  2. VISTARIL [Concomitant]
     Dosage: EVERY SIX HOURS WHEN NECESSARY.

REACTIONS (1)
  - BLOOD CREATINE PHOSPHOKINASE INCREASED [None]
